FAERS Safety Report 10222702 (Version 1)
Quarter: 2014Q2

REPORT INFORMATION
  Report Type: Spontaneous
  Country: US (occurrence: US)
  Receive Date: 20140606
  Receipt Date: 20140606
  Transmission Date: 20141212
  Serious: No
  Sender: FDA-Public Use
  Company Number: US-BAYER-2014-080489

PATIENT
  Age: 86 Year
  Sex: Male
  Weight: 63.95 kg

DRUGS (5)
  1. ALEVE TABLET [Suspect]
     Indication: PERIPHERAL VASCULAR DISORDER
     Dosage: 1 DF, QD
     Route: 048
     Dates: start: 201405, end: 20140526
  2. LISINOPRIL [Concomitant]
  3. VITAMIN D3 [Concomitant]
  4. VITAMIN B12 (CYANOCOBALAMIN AND ANALOGUES) [Concomitant]
  5. OMEPRAZOLE [Concomitant]

REACTIONS (4)
  - Burn of internal organs [Not Recovered/Not Resolved]
  - Foreign body [Not Recovered/Not Resolved]
  - Intentional product misuse [Unknown]
  - Off label use [Not Recovered/Not Resolved]
